FAERS Safety Report 7930713 (Version 2)
Quarter: 2012Q4

REPORT INFORMATION
  Report Type: 
  Country: US (occurrence: US)
  Receive Date: 20110504
  Receipt Date: 20121008
  Transmission Date: 20130627
  Serious: Yes (Other)
  Sender: FDA-Public Use
  Company Number: US-ROCHE-749332

PATIENT
  Age: 31 None
  Sex: Female
  Weight: 47.6 kg

DRUGS (2)
  1. ACCUTANE [Suspect]
     Indication: ACNE CYSTIC
     Route: 065
     Dates: start: 199504, end: 200511
  2. DEPO-PROVERA [Concomitant]
     Indication: CONTRACEPTION

REACTIONS (16)
  - Crohn^s disease [Unknown]
  - Gastrointestinal injury [Unknown]
  - Inflammatory bowel disease [Unknown]
  - Intestinal haemorrhage [Unknown]
  - Depression [Unknown]
  - Anal fistula [Unknown]
  - Irritable bowel syndrome [Unknown]
  - Renal disorder [Unknown]
  - Arthritis [Unknown]
  - Sinusitis [Unknown]
  - Pharyngitis [Unknown]
  - Upper respiratory tract infection [Unknown]
  - Urinary tract infection [Unknown]
  - VIIth nerve paralysis [Unknown]
  - Lymphadenitis [Unknown]
  - Rhinitis allergic [Unknown]
